FAERS Safety Report 7530314-8 (Version None)
Quarter: 2011Q2

REPORT INFORMATION
  Report Type: 
  Country: None (occurrence: None)
  Receive Date: 20110531
  Receipt Date: 20110512
  Transmission Date: 20111010
  Serious: Yes (Death, Hospitalization)
  Sender: FDA-Public Use
  Company Number: 2011MA005928

PATIENT
  Age: 64 Year
  Sex: Male

DRUGS (3)
  1. RAMIPRIL [Suspect]
     Indication: HYPERTENSION
     Dosage: QD, PO
     Route: 048
     Dates: start: 20110326, end: 20110420
  2. DOVOBET [Concomitant]
  3. BENDROFLUMETHIAZIDE [Concomitant]

REACTIONS (6)
  - TRYPTASE DECREASED [None]
  - HYPOXIC-ISCHAEMIC ENCEPHALOPATHY [None]
  - HYPERSENSITIVITY [None]
  - CONVULSION [None]
  - ANGIOEDEMA [None]
  - PARAESTHESIA ORAL [None]
